FAERS Safety Report 8224578 (Version 6)
Quarter: 2015Q1

REPORT INFORMATION
  Report Type: Spontaneous
  Country: JP (occurrence: JP)
  Receive Date: 20111103
  Receipt Date: 20150305
  Transmission Date: 20150721
  Serious: Yes (Death, Hospitalization, Disabling, Other)
  Sender: FDA-Public Use
  Company Number: JP-AMGEN-JPNSP2010004131

PATIENT
  Age: 62 Year
  Sex: Male
  Weight: 57.1 kg

DRUGS (14)
  1. ENBREL [Suspect]
     Active Substance: ETANERCEPT
     Indication: RHEUMATOID ARTHRITIS
     Dosage: 25 MG, 2X/WEEK
     Route: 058
     Dates: start: 20100629, end: 20101102
  2. HUMIRA [Suspect]
     Active Substance: ADALIMUMAB
     Indication: RHEUMATOID ARTHRITIS
     Dosage: UNK
     Route: 058
     Dates: start: 20081127, end: 20100628
  3. SELBEX [Concomitant]
     Active Substance: TEPRENONE
     Indication: PROPHYLAXIS AGAINST GASTROINTESTINAL ULCER
     Dosage: 150 MG, 1X/DAY
     Route: 048
     Dates: start: 20020430, end: 20101110
  4. PREDONINE [Concomitant]
     Active Substance: PREDNISOLONE\PREDNISOLONE ACETATE\PREDNISOLONE SODIUM SUCCINATE
     Indication: INFLAMMATION
     Dosage: 5 MG, 1X/DAY
     Route: 048
     Dates: start: 1984
  5. ONEALFA [Concomitant]
     Active Substance: ALFACALCIDOL
     Indication: OSTEOPOROSIS PROPHYLAXIS
     Dosage: UNK
     Route: 048
     Dates: start: 20020430, end: 20101110
  6. ALINAMIN F                         /00257801/ [Concomitant]
     Indication: FATIGUE
     Dosage: 75 MG, 1X/DAY
     Route: 048
     Dates: start: 20040608, end: 20101110
  7. LOXONIN [Concomitant]
     Active Substance: LOXOPROFEN SODIUM
     Indication: INFLAMMATION
     Dosage: 120 MG, 1X/DAY
     Route: 048
     Dates: start: 2000
  8. VOLTAREN [Concomitant]
     Active Substance: DICLOFENAC SODIUM
     Indication: ANALGESIC THERAPY
     Dosage: UNK, AS NECESSARY
  9. VITAMIN D                          /00107901/ [Concomitant]
     Active Substance: ERGOCALCIFEROL
     Dosage: UNK
  10. ALINAMIN F [Concomitant]
     Active Substance: FURSULTIAMINE HYDROCHLORIDE
     Indication: FATIGUE
     Dosage: 75 MG, 1X/DAY
     Route: 048
     Dates: start: 20040608, end: 20101110
  11. VITAMIN D [Concomitant]
     Active Substance: CHOLECALCIFEROL
     Dosage: UNK
  12. TAGAMET [Concomitant]
     Active Substance: CIMETIDINE
     Indication: PROPHYLAXIS AGAINST GASTROINTESTINAL ULCER
     Dosage: 600 MG, 1X/DAY
     Route: 048
     Dates: start: 20020430, end: 20101110
  13. RIMATIL [Suspect]
     Active Substance: BUCILLAMINE
     Indication: RHEUMATOID ARTHRITIS
     Dosage: 100 MG, 2X/DAY
     Route: 048
     Dates: start: 1984, end: 20101102
  14. MOHRUS [Concomitant]
     Active Substance: KETOPROFEN
     Indication: ANALGESIC THERAPY
     Dosage: UNK, AS NECESSARY
     Route: 062

REACTIONS (13)
  - Loss of consciousness [Unknown]
  - Sepsis [Fatal]
  - Infection [Recovered/Resolved]
  - Haemorrhage [Unknown]
  - Activities of daily living impaired [Unknown]
  - Contusion [Unknown]
  - Aplastic anaemia [Fatal]
  - Malaise [Unknown]
  - Pyrexia [Unknown]
  - Fall [Unknown]
  - Pancytopenia [Not Recovered/Not Resolved]
  - Injury [Recovered/Resolved]
  - Birth mark [Unknown]

NARRATIVE: CASE EVENT DATE: 201009
